FAERS Safety Report 12526489 (Version 1)
Quarter: 2016Q3

REPORT INFORMATION
  Report Type: Spontaneous
  Country: US (occurrence: None)
  Receive Date: 20160701
  Receipt Date: 20160701
  Transmission Date: 20161109
  Serious: Yes (Other)
  Sender: FDA-Public Use
  Company Number: None

PATIENT
  Sex: Female
  Weight: 121.38 kg

DRUGS (1)
  1. OXYCODONE ER 40MG [Suspect]
     Active Substance: OXYCODONE
     Indication: PAIN
     Route: 048
     Dates: start: 20160429, end: 20160629

REACTIONS (6)
  - Product substitution issue [None]
  - Chills [None]
  - Chest pain [None]
  - Nausea [None]
  - Drug ineffective [None]
  - Hyperhidrosis [None]
